FAERS Safety Report 7285373-7 (Version None)
Quarter: 2011Q1

REPORT INFORMATION
  Report Type: 
  Country: None (occurrence: None)
  Receive Date: 20110210
  Receipt Date: 20110201
  Transmission Date: 20110831
  Serious: Yes (Other)
  Sender: FDA-Public Use
  Company Number: US-ROCHE-758007

PATIENT
  Sex: Male

DRUGS (1)
  1. AVASTIN [Suspect]
     Indication: MACULAR DEGENERATION
     Dosage: DOSE AND FREQUENCY: NOT REPORTED
     Route: 050
     Dates: start: 20081001

REACTIONS (4)
  - KNEE DEFORMITY [None]
  - MACULAR DEGENERATION [None]
  - LACERATION [None]
  - BASAL CELL CARCINOMA [None]
